FAERS Safety Report 23689979 (Version 1)
Quarter: 2024Q2

REPORT INFORMATION
  Report Type: Other
  Country: GB (occurrence: GB)
  Receive Date: 20240401
  Receipt Date: 20240401
  Transmission Date: 20240716
  Serious: Yes (Other)
  Sender: FDA-Public Use
  Company Number: GB-MACLEODS PHARMACEUTICALS US LTD-MAC2024046577

PATIENT

DRUGS (2)
  1. ARIPIPRAZOLE [Suspect]
     Active Substance: ARIPIPRAZOLE
     Indication: Bipolar I disorder
     Dosage: 400 MILLIGRAM (INJECTION)
     Route: 065
     Dates: start: 20180305
  2. SERTRALINE [Concomitant]
     Active Substance: SERTRALINE HYDROCHLORIDE
     Indication: Bipolar I disorder
     Dosage: UNK
     Route: 065
     Dates: start: 2018

REACTIONS (2)
  - Suicidal ideation [Unknown]
  - Gambling disorder [Not Recovered/Not Resolved]

NARRATIVE: CASE EVENT DATE: 20200601
